FAERS Safety Report 13982931 (Version 1)
Quarter: 2017Q3

REPORT INFORMATION
  Report Type: Spontaneous
  Country: US (occurrence: None)
  Receive Date: 20170918
  Receipt Date: 20170918
  Transmission Date: 20171128
  Serious: No
  Sender: FDA-Public Use
  Company Number: None

PATIENT
  Age: 32 Year
  Sex: Male

DRUGS (8)
  1. METHYLPHENIDATE. [Concomitant]
     Active Substance: METHYLPHENIDATE
  2. CLONAZEPAM. [Concomitant]
     Active Substance: CLONAZEPAM
  3. ZYRTEC [Concomitant]
     Active Substance: CETIRIZINE HYDROCHLORIDE
  4. VENTOLIN HFA [Concomitant]
     Active Substance: ALBUTEROL SULFATE
  5. ANDROGEL [Concomitant]
     Active Substance: TESTOSTERONE
  6. CALCITONIN [Concomitant]
     Active Substance: CALCITONIN
  7. TRUVADA [Suspect]
     Active Substance: EMTRICITABINE\TENOFOVIR DISOPROXIL FUMARATE
     Indication: HIV INFECTION
     Dosage: 200-300 DAILY ORAL
     Route: 048
     Dates: start: 20160801
  8. TRUVADA [Suspect]
     Active Substance: EMTRICITABINE\TENOFOVIR DISOPROXIL FUMARATE
     Indication: THERAPEUTIC PROCEDURE
     Dosage: 200-300 DAILY ORAL
     Route: 048
     Dates: start: 20160801

REACTIONS (1)
  - Testis cancer [None]

NARRATIVE: CASE EVENT DATE: 20170915
